FAERS Safety Report 7905228-1 (Version None)
Quarter: 2011Q4

REPORT INFORMATION
  Report Type: 
  Country: None (occurrence: None)
  Receive Date: 20111109
  Receipt Date: 20111107
  Transmission Date: 20120403
  Serious: Yes (Death, Other)
  Sender: FDA-Public Use
  Company Number: US-AMGEN-USASP2011056763

PATIENT
  Age: 92 Year
  Sex: Male
  Weight: 66.4 kg

DRUGS (19)
  1. DIGOXIN [Concomitant]
     Dosage: 0.125 MG, UNK
     Route: 048
  2. FERROUS GLUCONATE [Concomitant]
     Dosage: 324 MG, QD
     Route: 048
  3. FLUTICASONE PROPIONATE/SALMETEROL [Concomitant]
  4. NPLATE [Suspect]
     Indication: CHRONIC LYMPHOCYTIC LEUKAEMIA
  5. ALBUTEROL [Concomitant]
     Dosage: 2.5 MG, UNK
  6. IPRATROPIUM BROMIDE AND ALBUTEROL SULFATE [Concomitant]
  7. TRAZODONE HYDROCHLORIDE [Concomitant]
  8. CHLORAMBUCIL [Concomitant]
     Indication: CHRONIC LYMPHOCYTIC LEUKAEMIA
  9. FUROSEMIDE [Concomitant]
     Dosage: 20 UNK, UNK
     Route: 048
  10. GUAIFENESIN/CODEINE [Concomitant]
  11. OMEPRAZOLE [Concomitant]
     Dosage: 20 MG, UNK
  12. PREDNISONE [Concomitant]
     Dosage: 2.5 MG, QD
  13. ACETAMINOPHEN [Concomitant]
     Dosage: 325 MG, UNK
     Route: 048
  14. NPLATE [Suspect]
     Indication: THROMBOCYTOPENIA
     Dosage: 60 MUG, UNK
     Dates: start: 20110225, end: 20110519
  15. STOMATOLOGICALS, MOUTH PREPARATIONS [Concomitant]
  16. NYSTATIN [Concomitant]
     Dosage: 5 ML, UNK
  17. GUAIFENESIN [Concomitant]
     Dosage: 1200 MG, UNK
  18. MULTIVITAMIN                       /00097801/ [Concomitant]
  19. SKIN REPAIR                        /00159501/ [Concomitant]

REACTIONS (4)
  - SEPSIS [None]
  - ISCHAEMIA [None]
  - PNEUMONIA [None]
  - GENERAL PHYSICAL HEALTH DETERIORATION [None]
